FAERS Safety Report 25448044 (Version 2)
Quarter: 2025Q2

REPORT INFORMATION
  Report Type: Spontaneous
  Country: JP (occurrence: JP)
  Receive Date: 20250617
  Receipt Date: 20250624
  Transmission Date: 20250717
  Serious: Yes (Other)
  Sender: MERCK SHARP & DOHME LLC
  Company Number: JP-009507513-2295753

PATIENT
  Age: 65 Year

DRUGS (2)
  1. KEYTRUDA [Suspect]
     Active Substance: PEMBROLIZUMAB
  2. CISPLATIN [Concomitant]
     Active Substance: CISPLATIN

REACTIONS (8)
  - Myelosuppression [Unknown]
  - Thyroiditis [Unknown]
  - Nausea [Unknown]
  - Diarrhoea [Unknown]
  - Myelosuppression [Unknown]
  - Drug eruption [Unknown]
  - Deep vein thrombosis [Unknown]
  - Myelosuppression [Unknown]
